FAERS Safety Report 5265556-8 (Version None)
Quarter: 2007Q1

REPORT INFORMATION
  Report Type: 
  Country: None (occurrence: None)
  Receive Date: 20070314
  Receipt Date: 20070307
  Transmission Date: 20070707
  Serious: Yes (Other)
  Sender: FDA-Public Use
  Company Number: GB-MERCK-0411GBR00056

PATIENT
  Age: 72 Year
  Sex: Female
  Weight: 68 kg

DRUGS (6)
  1. ZETIA [Suspect]
     Indication: HYPERCHOLESTEROLAEMIA
     Route: 048
     Dates: start: 20040929, end: 20070127
  2. FUROSEMIDE [Concomitant]
     Indication: OEDEMA PERIPHERAL
     Route: 065
  3. WARFARIN [Concomitant]
     Route: 065
  4. DIGOXIN [Concomitant]
     Indication: CARDIAC FIBRILLATION
     Route: 065
  5. CLOPIDOGREL BISULFATE [Concomitant]
     Route: 065
     Dates: start: 20040406, end: 20050507
  6. LACTULOSE [Concomitant]
     Route: 065

REACTIONS (2)
  - JOINT STIFFNESS [None]
  - MUSCULOSKELETAL STIFFNESS [None]
